FAERS Safety Report 10226677 (Version 1)
Quarter: 2014Q2

REPORT INFORMATION
  Report Type: Spontaneous
  Country: CA (occurrence: CA)
  Receive Date: 20140609
  Receipt Date: 20140609
  Transmission Date: 20141212
  Serious: Yes (Death)
  Sender: FDA-Public Use
  Company Number: CA-B.I. PHARMACEUTICALS,INC./RIDGEFIELD-2014-BI-25842CN

PATIENT
  Age: 60 Year
  Sex: Male

DRUGS (13)
  1. MICARDIS [Suspect]
     Indication: PRODUCT USED FOR UNKNOWN INDICATION
     Route: 048
  2. FUROSEMIDE [Suspect]
     Indication: PRODUCT USED FOR UNKNOWN INDICATION
     Route: 065
  3. METFORMIN [Suspect]
     Indication: PRODUCT USED FOR UNKNOWN INDICATION
     Route: 065
  4. RAMIPRIL [Suspect]
     Indication: PRODUCT USED FOR UNKNOWN INDICATION
     Dosage: 10 MG
     Route: 048
  5. AMIODARONE [Concomitant]
     Route: 065
  6. AMITRIPTYLINE [Concomitant]
     Route: 065
  7. ASA [Concomitant]
     Route: 065
  8. AVANDIA [Concomitant]
     Route: 065
  9. GEMFIBROZIL [Concomitant]
     Route: 065
  10. INSULIN [Concomitant]
     Route: 065
  11. METOPROLOL [Concomitant]
     Route: 065
  12. NEURONTIN [Concomitant]
     Route: 065
  13. RANITIDINE [Concomitant]
     Route: 065

REACTIONS (4)
  - Blood creatinine increased [Fatal]
  - Cardiogenic shock [Fatal]
  - Renal failure acute [Fatal]
  - Renal failure chronic [Fatal]
